FAERS Safety Report 7500986-2 (Version None)
Quarter: 2011Q2

REPORT INFORMATION
  Report Type: 
  Country: None (occurrence: None)
  Receive Date: 20110524
  Receipt Date: 20110511
  Transmission Date: 20111010
  Serious: Yes (Hospitalization, Other)
  Sender: FDA-Public Use
  Company Number: DE-AMGEN-DEUSP2011004867

PATIENT
  Age: 85 Year
  Sex: Female

DRUGS (7)
  1. THYROXIN [Concomitant]
     Indication: HYPOTHYROIDISM
     Dosage: 75 A?G, UNK
  2. PROLIA [Suspect]
     Indication: PRODUCT USED FOR UNKNOWN INDICATION
     Dosage: UNK
     Route: 058
     Dates: start: 20101202, end: 20101202
  3. METOPROLOL [Concomitant]
     Indication: TACHYCARDIA
     Dosage: 50 MG, UNK
     Route: 048
  4. AMLODIPINE BESYLATE [Concomitant]
     Dosage: 5 MG, PRN
     Route: 048
  5. CALCIUM CARBONATE [Concomitant]
     Dosage: UNK
  6. NOVODIGAL                          /00017701/ [Concomitant]
     Indication: TACHYCARDIA
     Dosage: UNK
     Route: 048
  7. IRBESARTAN [Concomitant]
     Indication: HYPERTENSION
     Dosage: 75 MG, QD

REACTIONS (9)
  - LENTIGO MALIGNA STAGE UNSPECIFIED [None]
  - CLOSTRIDIAL INFECTION [None]
  - HAEMATOMA [None]
  - CONSTIPATION [None]
  - BASAL CELL CARCINOMA [None]
  - FALL [None]
  - CEREBROVASCULAR ACCIDENT [None]
  - ESCHERICHIA URINARY TRACT INFECTION [None]
  - GENERAL PHYSICAL HEALTH DETERIORATION [None]
